FAERS Safety Report 11852779 (Version 1)
Quarter: 2015Q4

REPORT INFORMATION
  Report Type: Spontaneous
  Country: DE (occurrence: DE)
  Receive Date: 20151218
  Receipt Date: 20151218
  Transmission Date: 20160305
  Serious: Yes (Congenital Anomaly, Other)
  Sender: FDA-Public Use
  Company Number: GXKR2015DE005465

PATIENT
  Age: 1 Day
  Sex: Female
  Weight: 3.16 kg

DRUGS (5)
  1. FOLIO                              /00349401/ [Concomitant]
     Indication: VITAMIN SUPPLEMENTATION
     Dosage: 0.4 MG, QD (GW 13 TO 33.6)
     Route: 064
  2. AMITRIPTYLIN [Concomitant]
     Active Substance: AMITRIPTYLINE
     Indication: DEPRESSION
     Dosage: 50 MG, QD (GW 0 TO 7.6)
     Route: 064
  3. URSODEOXYCHOLIC ACID [Concomitant]
     Active Substance: URSODIOL
     Indication: CHOLESTASIS OF PREGNANCY
     Dosage: 150 MG, QD (GW 34.5 TO 36.1)
     Route: 064
     Dates: start: 20150521, end: 20150701
  4. VENLAFAXINE [Suspect]
     Active Substance: VENLAFAXINE HYDROCHLORIDE
     Indication: DEPRESSION
     Dosage: 300 MG, QD
     Route: 064
     Dates: start: 20141021, end: 20150701
  5. SEROQUEL [Suspect]
     Active Substance: QUETIAPINE FUMARATE
     Indication: PSYCHOTIC DISORDER
     Dosage: 150 MG, QD
     Route: 064
     Dates: start: 20141021, end: 20150701

REACTIONS (7)
  - Temperature regulation disorder [Recovered/Resolved]
  - Feeding disorder of infancy or early childhood [Recovered/Resolved]
  - Agitation neonatal [Recovered/Resolved]
  - Atrial septal defect [Unknown]
  - Seizure [Recovered/Resolved]
  - Hypotonia neonatal [Recovered/Resolved]
  - Syndactyly [Not Recovered/Not Resolved]

NARRATIVE: CASE EVENT DATE: 20150701
